FAERS Safety Report 5830752-5 (Version None)
Quarter: 2008Q3

REPORT INFORMATION
  Report Type: 
  Country: None (occurrence: None)
  Receive Date: 20080801
  Receipt Date: 20071109
  Transmission Date: 20090109
  Serious: No
  Sender: FDA-Public Use
  Company Number: US-BRISTOL-MYERS SQUIBB COMPANY-13977335

PATIENT
  Age: 80 Year
  Sex: Female
  Weight: 68 kg

DRUGS (4)
  1. WARFARIN SODIUM [Suspect]
     Indication: ATRIAL FIBRILLATION
     Dosage: 2.5-5 MG FOR ONE YEAR AND 5 MG FROM 08-NOV-2007 UNTIL 11-NOV-2007.
  2. DIGOXIN [Concomitant]
  3. METOPROLOL [Concomitant]
  4. ATIVAN [Concomitant]

REACTIONS (2)
  - HALLUCINATION [None]
  - INTERNATIONAL NORMALISED RATIO DECREASED [None]
